FAERS Safety Report 8299810-2 (Version None)
Quarter: 2012Q2

REPORT INFORMATION
  Report Type: 
  Country: None (occurrence: None)
  Receive Date: 20120419
  Receipt Date: 20120419
  Transmission Date: 20120825
  Serious: No
  Sender: FDA-Public Use
  Company Number: None

PATIENT
  Age: 58 Year
  Sex: Female
  Weight: 71.667 kg

DRUGS (1)
  1. TRAZODONE HCL [Suspect]
     Indication: INSOMNIA
     Dosage: 1 PER DAY
     Dates: start: 20120415, end: 20120417

REACTIONS (8)
  - GAIT DISTURBANCE [None]
  - INSOMNIA [None]
  - LETHARGY [None]
  - FATIGUE [None]
  - FALL [None]
  - FEELING ABNORMAL [None]
  - DIZZINESS [None]
  - PRODUCT QUALITY ISSUE [None]
